FAERS Safety Report 6781616-4 (Version None)
Quarter: 2010Q2

REPORT INFORMATION
  Report Type: 
  Country: None (occurrence: None)
  Receive Date: 20100615
  Receipt Date: 20100531
  Transmission Date: 20101027
  Serious: Yes (Other)
  Sender: FDA-Public Use
  Company Number: AUR-APL-2010-01433

PATIENT
  Age: 29 Year
  Sex: Female

DRUGS (3)
  1. SERTRALINE [Suspect]
     Indication: DEPRESSIVE SYMPTOM
     Dosage: 50MG
  2. VANLAFAXINE [Concomitant]
     Indication: ANXIETY
     Dosage: 75MG
  3. VANLAFAXINE [Concomitant]
     Indication: DEPRESSED MOOD
     Dosage: 75MG

REACTIONS (3)
  - CONVERSION DISORDER [None]
  - MOVEMENT DISORDER [None]
  - TREMOR [None]
